FAERS Safety Report 20748594 (Version 1)
Quarter: 2022Q2

REPORT INFORMATION
  Report Type: Spontaneous
  Country: RU (occurrence: RU)
  Receive Date: 20220426
  Receipt Date: 20220426
  Transmission Date: 20220721
  Serious: Yes (Other)
  Sender: FDA-Public Use
  Company Number: RU-BEH-2022144611

PATIENT
  Age: 3 Year
  Sex: Male
  Weight: 11 kg

DRUGS (12)
  1. ALBUREX [Suspect]
     Active Substance: ALBUMIN HUMAN
     Indication: Hypoalbuminaemia
     Dosage: UNK
     Route: 042
     Dates: start: 20210726, end: 20210728
  2. CEFTRIAXONE [Suspect]
     Active Substance: CEFTRIAXONE
     Indication: Tonsillitis bacterial
     Dosage: UNK
     Route: 042
     Dates: start: 20210722, end: 20210723
  3. CEFTAZIDIME [Suspect]
     Active Substance: CEFTAZIDIME
     Indication: Tonsillitis bacterial
     Dosage: UNK
     Route: 042
     Dates: start: 20210723, end: 20210726
  4. SODIUM BICARBONATE [Suspect]
     Active Substance: SODIUM BICARBONATE
     Indication: Acute leukaemia
     Dosage: UNK
     Route: 042
     Dates: start: 20210723, end: 20210728
  5. FUROSEMIDE [Suspect]
     Active Substance: FUROSEMIDE
     Indication: Polyuria
     Dosage: UNK
     Route: 042
     Dates: start: 20210723, end: 20210728
  6. MEROPENEM [Suspect]
     Active Substance: MEROPENEM
     Indication: Pneumonia
     Dosage: UNK
     Route: 042
     Dates: start: 20210725
  7. AMPHOTERICIN B [Suspect]
     Active Substance: AMPHOTERICIN B
     Indication: Oral candidiasis
     Dosage: UNK
     Route: 042
     Dates: start: 20210726
  8. LINEZOLID [Suspect]
     Active Substance: LINEZOLID
     Indication: Pneumonia
     Dosage: UNK
     Route: 042
     Dates: start: 20210726
  9. COTRIMOXAZOLE [Suspect]
     Active Substance: SULFAMETHOXAZOLE\TRIMETHOPRIM
     Indication: Antifungal prophylaxis
     Dosage: UNK
     Route: 048
     Dates: start: 20210726
  10. ACETAMINOPHEN [Suspect]
     Active Substance: ACETAMINOPHEN
     Indication: Hyperthermia
     Dosage: UNK
     Route: 042
     Dates: start: 20210728
  11. MONTMORILLONITE [Suspect]
     Active Substance: MONTMORILLONITE
     Indication: Dyspepsia
     Dosage: UNK
     Route: 048
     Dates: start: 20210728, end: 20210728
  12. INHALIPT [Concomitant]
     Indication: Tonsillitis
     Dosage: UNK
     Route: 048
     Dates: start: 20210706

REACTIONS (2)
  - Pyrexia [Recovered/Resolved]
  - Urticaria [Recovered/Resolved]

NARRATIVE: CASE EVENT DATE: 20210728
